FAERS Safety Report 6186922-2 (Version None)
Quarter: 2009Q2

REPORT INFORMATION
  Report Type: 
  Country: None (occurrence: None)
  Receive Date: 20090512
  Receipt Date: 20090504
  Transmission Date: 20091009
  Serious: No
  Sender: FDA-Public Use
  Company Number: US-AMGEN-QUU343606

PATIENT
  Sex: Female
  Weight: 94.6 kg

DRUGS (8)
  1. NEULASTA [Suspect]
     Indication: CHEMOTHERAPY
  2. PACLITAXEL [Concomitant]
  3. BENADRYL [Concomitant]
  4. DECADRON [Concomitant]
  5. ANZEMET [Concomitant]
  6. CIMETIDINE HCL [Concomitant]
  7. ADRIAMYCIN RDF [Concomitant]
  8. CYTOXAN [Concomitant]

REACTIONS (1)
  - SYNCOPE [None]
